FAERS Safety Report 20709883 (Version 2)
Quarter: 2022Q2

REPORT INFORMATION
  Report Type: Spontaneous
  Country: DE (occurrence: DE)
  Receive Date: 20220414
  Receipt Date: 20220429
  Transmission Date: 20220721
  Serious: Yes (Other)
  Sender: FDA-Public Use
  Company Number: DE-PEI-202200097761

PATIENT
  Age: 22 Year
  Sex: Female
  Weight: 68.8 kg

DRUGS (4)
  1. IBUPROFEN [Suspect]
     Active Substance: IBUPROFEN
     Indication: Product used for unknown indication
     Route: 065
  2. PRIDINOL MESILATE [Suspect]
     Active Substance: PRIDINOL MESILATE
     Indication: Product used for unknown indication
     Route: 065
  3. ACONITUM NAPELLUS\HOMEOPATHICS [Suspect]
     Active Substance: ACONITUM NAPELLUS\HOMEOPATHICS
     Indication: Product used for unknown indication
     Route: 065
  4. PROCHLORPERAZINE [Suspect]
     Active Substance: PROCHLORPERAZINE
     Indication: Product used for unknown indication
     Route: 065

REACTIONS (6)
  - Paralysis [Recovered/Resolved]
  - Muscle tightness [Recovered/Resolved]
  - Vomiting [Recovered/Resolved]
  - Headache [Recovered/Resolved]
  - Nausea [Recovered/Resolved]
  - Visual impairment [Recovered/Resolved]

NARRATIVE: CASE EVENT DATE: 20220206
